FAERS Safety Report 8087957-5 (Version None)
Quarter: 2012Q1

REPORT INFORMATION
  Report Type: 
  Country: None (occurrence: None)
  Receive Date: 20120131
  Receipt Date: 20120123
  Transmission Date: 20120608
  Serious: Yes (Other)
  Sender: FDA-Public Use
  Company Number: PL-ACCORD-012112

PATIENT
  Age: 62 Year
  Sex: Female

DRUGS (3)
  1. DONEPEZIL HCL [Suspect]
     Dosage: STRATED AT A DOSAGE OF 5 MG DAILY, THEN INCREASED TO 10 MG ONCE DAILY, REINTRODUCED 5 MG TWICE DAILY
     Dates: end: 20080801
  2. ACETAMINOPHEN [Concomitant]
  3. ASPIRIN [Concomitant]

REACTIONS (2)
  - WITHDRAWAL SYNDROME [None]
  - SOMATOFORM DISORDER [None]
